FAERS Safety Report 6406547-0 (Version None)
Quarter: 2009Q4

REPORT INFORMATION
  Report Type: 
  Country: None (occurrence: None)
  Receive Date: 20091019
  Receipt Date: 20091012
  Transmission Date: 20100525
  Serious: Yes (Other)
  Sender: FDA-Public Use
  Company Number: RU-MERCK-0910RUS00002

PATIENT
  Age: 72 Year
  Sex: Female

DRUGS (6)
  1. FOSAMAX PLUS D [Suspect]
     Indication: MYOCARDIAL ISCHAEMIA
     Route: 048
  2. FOSAMAX PLUS D [Suspect]
     Indication: HYPERTENSION
     Route: 048
  3. ASPIRIN [Concomitant]
     Indication: MYOCARDIAL ISCHAEMIA
     Route: 048
  4. ASPIRIN [Concomitant]
     Indication: HYPERTENSION
     Route: 048
  5. BISOPROLOL FUMARATE [Concomitant]
     Indication: MYOCARDIAL ISCHAEMIA
     Route: 048
  6. BISOPROLOL FUMARATE [Concomitant]
     Indication: HYPERTENSION
     Route: 048

REACTIONS (1)
  - HYPERTENSIVE CRISIS [None]
